FAERS Safety Report 18847542 (Version 1)
Quarter: 2021Q1

REPORT INFORMATION
  Report Type: Spontaneous
  Country: CZ (occurrence: CZ)
  Receive Date: 20210203
  Receipt Date: 20210203
  Transmission Date: 20210419
  Serious: No
  Sender: FDA-Public Use
  Company Number: CZ-EXELIXIS-CABO-20032133

PATIENT
  Age: 51 Year
  Sex: Male

DRUGS (1)
  1. COMETRIQ [Suspect]
     Active Substance: CABOZANTINIB S-MALATE
     Indication: MEDULLARY THYROID CANCER
     Dosage: 140 MG, QD
     Route: 048
     Dates: start: 201607, end: 201801

REACTIONS (5)
  - Decreased appetite [Unknown]
  - Fatigue [Unknown]
  - Malignant neoplasm progression [Unknown]
  - Palmar-plantar erythrodysaesthesia syndrome [Unknown]
  - Liver function test abnormal [Unknown]

NARRATIVE: CASE EVENT DATE: 201801
